FAERS Safety Report 23759887 (Version 2)
Quarter: 2024Q2

REPORT INFORMATION
  Report Type: Spontaneous
  Country: US (occurrence: US)
  Receive Date: 20240419
  Receipt Date: 20240508
  Transmission Date: 20240716
  Serious: Yes (Life-Threatening, Hospitalization, Other)
  Sender: FDA-Public Use
  Company Number: US-AMGEN-USASP2024073268

PATIENT

DRUGS (2)
  1. INFLIXIMAB [Suspect]
     Active Substance: INFLIXIMAB
     Indication: Exposure during pregnancy
     Dosage: UNK
     Route: 064
  2. ETANERCEPT [Suspect]
     Active Substance: ETANERCEPT
     Indication: Exposure during pregnancy
     Dosage: UNK
     Route: 064

REACTIONS (6)
  - Foetal growth restriction [Unknown]
  - Unevaluable event [Unknown]
  - Intensive care [Unknown]
  - Premature baby [Unknown]
  - Foetal exposure during pregnancy [Unknown]
  - Low birth weight baby [Unknown]
